FAERS Safety Report 8567671-X (Version None)
Quarter: 2012Q3

REPORT INFORMATION
  Report Type: 
  Country: None (occurrence: None)
  Receive Date: 20120803
  Receipt Date: 20120725
  Transmission Date: 20120928
  Serious: Yes (Hospitalization)
  Sender: FDA-Public Use
  Company Number: CA-JNJFOC-20120607954

PATIENT
  Sex: Female
  Weight: 73.3 kg

DRUGS (2)
  1. REMICADE [Suspect]
     Indication: RHEUMATOID ARTHRITIS
     Dosage: LESS THAN HALF DOSAGE RECEIVED.
     Route: 042
     Dates: start: 20120725
  2. REMICADE [Suspect]
     Route: 042
     Dates: start: 20020909

REACTIONS (2)
  - BLOOD GLUCOSE INCREASED [None]
  - OESOPHAGEAL HAEMORRHAGE [None]
